FAERS Safety Report 8952469 (Version 2)
Quarter: 2014Q1

REPORT INFORMATION
  Report Type: Spontaneous
  Country: US (occurrence: US)
  Receive Date: 20121205
  Receipt Date: 20140116
  Transmission Date: 20141002
  Serious: Yes (Other)
  Sender: FDA-Public Use
  Company Number: US-BAYER-2012-126089

PATIENT
  Age: 36 Year
  Sex: Female

DRUGS (4)
  1. YAZ [Suspect]
     Dosage: UNK
     Dates: start: 20080522
  2. YASMIN [Suspect]
     Dosage: UNK
     Dates: start: 20080522
  3. OCELLA [Suspect]
     Dosage: UNK
     Dates: start: 20080522
  4. ZOLOFT [Concomitant]
     Dosage: 25 MG, UNK

REACTIONS (9)
  - Gallbladder injury [None]
  - Cholecystitis chronic [None]
  - Deep vein thrombosis [None]
  - Injury [None]
  - Pain [None]
  - Emotional distress [None]
  - General physical health deterioration [None]
  - Anxiety [None]
  - Pain [None]
